FAERS Safety Report 18889210 (Version 1)
Quarter: 2021Q1

REPORT INFORMATION
  Report Type: Spontaneous
  Country: US (occurrence: US)
  Receive Date: 20210212
  Receipt Date: 20210212
  Transmission Date: 20210420
  Serious: No
  Sender: FDA-Public Use
  Company Number: US-ENDO PHARMACEUTICALS INC-2020-006379

PATIENT
  Age: 50 Year
  Sex: Female

DRUGS (3)
  1. METHYLPREDNISOLONE. [Suspect]
     Active Substance: METHYLPREDNISOLONE
     Indication: HYPERSENSITIVITY
     Dosage: 24 MG, DAILY
     Route: 065
     Dates: start: 20200921, end: 20200921
  2. CLARITIN [Concomitant]
     Active Substance: LORATADINE
     Indication: PRODUCT USED FOR UNKNOWN INDICATION
  3. METHYLPREDNISOLONE. [Suspect]
     Active Substance: METHYLPREDNISOLONE
     Dosage: 20 MG, DAILY
     Route: 065
     Dates: start: 20200922

REACTIONS (4)
  - Heart rate increased [Unknown]
  - Product blister packaging issue [Unknown]
  - Headache [Unknown]
  - Medication error [Unknown]

NARRATIVE: CASE EVENT DATE: 20200921
